FAERS Safety Report 4509550-0 (Version None)
Quarter: 2004Q4

REPORT INFORMATION
  Report Type: 
  Country: None (occurrence: None)
  Receive Date: 20041119
  Receipt Date: 20041113
  Transmission Date: 20050328
  Serious: Yes (Hospitalization)
  Sender: FDA-Public Use
  Company Number: US-SHR-03-013990

PATIENT
  Age: 63 Year
  Sex: Female
  Weight: 59 kg

DRUGS (2)
  1. BETASERON [Suspect]
     Indication: MULTIPLE SCLEROSIS
     Dosage: 8 MIU, QOD, SUBCUTANEOUS
     Route: 058
     Dates: start: 19940725
  2. TRIMETHOPRIM [Concomitant]

REACTIONS (3)
  - BLADDER CANCER [None]
  - DRY SKIN [None]
  - RASH [None]
